FAERS Safety Report 7478780-0 (Version None)
Quarter: 2011Q2

REPORT INFORMATION
  Report Type: 
  Country: None (occurrence: None)
  Receive Date: 20110513
  Receipt Date: 20110506
  Transmission Date: 20111010
  Serious: Yes (Life-Threatening, Hospitalization)
  Sender: FDA-Public Use
  Company Number: IT-JNJFOC-20110504053

PATIENT
  Age: 52 Year
  Sex: Female

DRUGS (3)
  1. FERLIXIT [Concomitant]
     Indication: IRON DEFICIENCY ANAEMIA
     Route: 042
  2. LEVOFLOXACIN [Suspect]
     Indication: ENDOCARDITIS STAPHYLOCOCCAL
     Route: 048
  3. RIFADIN [Suspect]
     Indication: ENDOCARDITIS STAPHYLOCOCCAL
     Route: 048

REACTIONS (4)
  - THROMBOCYTOSIS [None]
  - PYREXIA [None]
  - AGRANULOCYTOSIS [None]
  - ANAEMIA [None]
